FAERS Safety Report 4954142-2 (Version None)
Quarter: 2006Q1

REPORT INFORMATION
  Report Type: 
  Country: None (occurrence: None)
  Receive Date: 20060327
  Receipt Date: 20060321
  Transmission Date: 20060701
  Serious: Yes (Death)
  Sender: FDA-Public Use
  Company Number: 2006GB00491

PATIENT

DRUGS (6)
  1. OMEPRAZOLE [Suspect]
     Indication: ABDOMINAL DISTENSION
     Route: 064
  2. OMEPRAZOLE [Suspect]
     Indication: FLATULENCE
     Route: 064
  3. PEPPERMINT OIL [Concomitant]
     Indication: ABDOMINAL DISTENSION
     Route: 064
  4. PEPPERMINT OIL [Concomitant]
     Indication: FLATULENCE
     Route: 064
  5. GAVISCON [Concomitant]
     Indication: ABDOMINAL DISTENSION
     Route: 064
  6. GAVISCON [Concomitant]
     Indication: FLATULENCE
     Route: 064

REACTIONS (2)
  - DRUG EXPOSURE DURING PREGNANCY [None]
  - PREMATURE BABY [None]
